FAERS Safety Report 10070327 (Version 5)
Quarter: 2015Q2

REPORT INFORMATION
  Report Type: Spontaneous
  Country: US (occurrence: US)
  Receive Date: 20140410
  Receipt Date: 20150408
  Transmission Date: 20150821
  Serious: Yes (Hospitalization)
  Sender: FDA-Public Use
  Company Number: US-BAYER-2014-053529

PATIENT
  Age: 22 Year
  Sex: Female
  Weight: 95.24 kg

DRUGS (2)
  1. MIRENA [Suspect]
     Active Substance: LEVONORGESTREL
     Indication: CONTRACEPTION
     Dosage: 20 MCG/24HR, CONT
     Route: 015
     Dates: start: 20120213, end: 20120309
  2. TYLENOL WITH CODEINE [Concomitant]
     Active Substance: ACETAMINOPHEN\CODEINE PHOSPHATE
     Indication: HEADACHE

REACTIONS (6)
  - Injury [None]
  - Medical device pain [None]
  - Post procedural discomfort [Not Recovered/Not Resolved]
  - Menorrhagia [None]
  - Procedural pain [Not Recovered/Not Resolved]
  - Uterine perforation [None]

NARRATIVE: CASE EVENT DATE: 201203
